FAERS Safety Report 7204380-3 (Version None)
Quarter: 2010Q4

REPORT INFORMATION
  Report Type: 
  Country: None (occurrence: None)
  Receive Date: 20101230
  Receipt Date: 20101222
  Transmission Date: 20110411
  Serious: Yes (Death)
  Sender: FDA-Public Use
  Company Number: JP-ROCHE-750644

PATIENT
  Age: 61 Year
  Sex: Male

DRUGS (1)
  1. AVASTIN [Suspect]
     Indication: LARGE INTESTINE CARCINOMA
     Route: 041

REACTIONS (1)
  - ROAD TRAFFIC ACCIDENT [None]
